FAERS Safety Report 9073559 (Version 1)
Quarter: 2013Q1

REPORT INFORMATION
  Report Type: Report from Study
  Country: US (occurrence: US)
  Receive Date: 20130128
  Receipt Date: 20130128
  Transmission Date: 20140127
  Serious: No
  Sender: FDA-Public Use
  Company Number: US-ABBOTT-12P-163-0918391-00

PATIENT
  Sex: Female

DRUGS (2)
  1. HUMIRA 40 MG/0.8 ML PEN [Suspect]
     Indication: PRODUCT USED FOR UNKNOWN INDICATION
     Route: 058
  2. HUMIRA 40 MG/0.8 ML PEN [Suspect]
     Dosage: HUMIRA 2EA 40MG/08.ML
     Route: 058

REACTIONS (3)
  - Hyperkeratosis [Unknown]
  - Headache [Unknown]
  - Inflammation [Unknown]
